FAERS Safety Report 20355383 (Version 3)
Quarter: 2022Q4

REPORT INFORMATION
  Report Type: Spontaneous
  Country: GR (occurrence: GR)
  Receive Date: 20220120
  Receipt Date: 20221205
  Transmission Date: 20230113
  Serious: Yes (Hospitalization, Other)
  Sender: FDA-Public Use
  Company Number: GR-MYLANLABS-2022M1004042

PATIENT
  Age: 6 Year
  Sex: Female

DRUGS (2)
  1. IBUPROFEN [Suspect]
     Active Substance: IBUPROFEN
     Indication: Pyrexia
     Dosage: UNK
     Route: 065
  2. CEFACLOR [Suspect]
     Active Substance: CEFACLOR
     Indication: Pyrexia
     Dosage: UNK
     Route: 065

REACTIONS (15)
  - Microcytic anaemia [Recovered/Resolved]
  - Swelling face [Recovered/Resolved]
  - Decreased appetite [Recovered/Resolved]
  - Tubulointerstitial nephritis [Recovering/Resolving]
  - Rash pruritic [Recovered/Resolved]
  - Vomiting [Recovered/Resolved]
  - Diarrhoea [Recovered/Resolved]
  - Metabolic acidosis [Recovered/Resolved]
  - Eosinophilia [Recovered/Resolved]
  - Normochromic normocytic anaemia [Recovered/Resolved]
  - Proteinuria [Recovered/Resolved]
  - Urticaria [Recovered/Resolved]
  - Face oedema [Recovered/Resolved]
  - Oedema peripheral [Recovered/Resolved]
  - Kidney enlargement [Recovered/Resolved]
